FAERS Safety Report 8589994-0 (Version None)
Quarter: 2012Q3

REPORT INFORMATION
  Report Type: 
  Country: None (occurrence: None)
  Receive Date: 20120813
  Receipt Date: 20120802
  Transmission Date: 20120928
  Serious: Yes (Hospitalization, Other)
  Sender: FDA-Public Use
  Company Number: FR-ELI_LILLY_AND_COMPANY-FR201208000600

PATIENT
  Sex: Male

DRUGS (1)
  1. ALIMTA [Suspect]
     Indication: BRONCHIOLOALVEOLAR CARCINOMA
     Route: 042

REACTIONS (5)
  - STREPTOCOCCAL INFECTION [None]
  - CARCINOEMBRYONIC ANTIGEN INCREASED [None]
  - THROMBOCYTOPENIA [None]
  - RENAL FAILURE CHRONIC [None]
  - ANAEMIA [None]
